FAERS Safety Report 6752515-9 (Version None)
Quarter: 2010Q2

REPORT INFORMATION
  Report Type: 
  Country: None (occurrence: None)
  Receive Date: 20100601
  Receipt Date: 20100601
  Transmission Date: 20101027
  Serious: Yes (Other)
  Sender: FDA-Public Use
  Company Number: None

PATIENT
  Sex: Female
  Weight: 63.5036 kg

DRUGS (3)
  1. EMSAM [Suspect]
     Indication: MAJOR DEPRESSION
     Dosage: 1 PATCH / DAY TRANSDERMAL
     Route: 062
     Dates: start: 20070101, end: 20100529
  2. HYPOALLERGENIC SKIN LOTIONS [Concomitant]
  3. SUNSCREENS [Concomitant]

REACTIONS (2)
  - APPLICATION SITE DRYNESS [None]
  - APPLICATION SITE ERYTHEMA [None]
